FAERS Safety Report 8767442 (Version 2)
Quarter: 2012Q4

REPORT INFORMATION
  Report Type: 
  Country: DE (occurrence: JP)
  Receive Date: 20120904
  Receipt Date: 20120926
  Transmission Date: 20130627
  Serious: Yes (Hospitalization)
  Sender: FDA-Public Use
  Company Number: JP-BRISTOL-MYERS SQUIBB COMPANY-16849879

PATIENT
  Age: 72 Year
  Sex: Female

DRUGS (2)
  1. ERBITUX SOLN FOR INF 5MG/ML [Suspect]
     Indication: COLON CANCER
     Route: 041
     Dates: start: 20120608
  2. CAMPTO [Concomitant]
     Indication: COLON CANCER
     Dosage: INJ
     Route: 041

REACTIONS (1)
  - Gastrointestinal stoma complication [Recovering/Resolving]
